FAERS Safety Report 21445844 (Version 3)
Quarter: 2022Q4

REPORT INFORMATION
  Report Type: Spontaneous
  Country: JP (occurrence: JP)
  Receive Date: 20221012
  Receipt Date: 20221128
  Transmission Date: 20230113
  Serious: Yes (Other)
  Sender: FDA-Public Use
  Company Number: JP-ONO-2022JP027305

PATIENT
  Age: 70 Year
  Sex: Male

DRUGS (3)
  1. OPDIVO [Suspect]
     Active Substance: NIVOLUMAB
     Indication: Gastric cancer
     Dosage: 360MG, Q3W
     Route: 041
     Dates: start: 20220526, end: 202206
  2. OPDIVO [Suspect]
     Active Substance: NIVOLUMAB
     Dosage: 360MG, Q4W
     Route: 041
     Dates: start: 20220526, end: 202206
  3. PROPYLTHIOURACIL [Concomitant]
     Active Substance: PROPYLTHIOURACIL
     Indication: Hyperthyroidism
     Dosage: (ORAL DRUG UNSPECIFIED FORM)
     Route: 048
     Dates: end: 202208

REACTIONS (5)
  - Hypothyroidism [Recovered/Resolved]
  - Blood thyroid stimulating hormone decreased [Recovered/Resolved]
  - Thyroxine free increased [Recovered/Resolved]
  - Obstruction gastric [Recovered/Resolved]
  - Off label use [Unknown]

NARRATIVE: CASE EVENT DATE: 20220601
